FAERS Safety Report 4350891-8 (Version None)
Quarter: 2004Q2

REPORT INFORMATION
  Report Type: 
  Country: None (occurrence: None)
  Receive Date: 20040427
  Receipt Date: 20040415
  Transmission Date: 20050107
  Serious: No
  Sender: FDA-Public Use
  Company Number: 04P-056-0258181-00

PATIENT
  Sex: Female

DRUGS (2)
  1. DEPAKENE [Suspect]
     Indication: EPILEPSY
     Dosage: 1000 MG, 1 IN 1 D
     Dates: start: 19980101
  2. CALCIUM FOLINATE [Concomitant]

REACTIONS (4)
  - COMPLICATIONS OF MATERNAL EXPOSURE TO THERAPEUTIC DRUGS [None]
  - CYSTINURIA [None]
  - INFECTION [None]
  - PREGNANCY [None]
